FAERS Safety Report 4376685-5 (Version None)
Quarter: 2004Q2

REPORT INFORMATION
  Report Type: 
  Country: None (occurrence: None)
  Receive Date: 20040608
  Receipt Date: 20040526
  Transmission Date: 20050107
  Serious: No
  Sender: FDA-Public Use
  Company Number: 04P-163-0262263-00

PATIENT
  Age: 14 Year
  Sex: Female

DRUGS (3)
  1. BIAXIN [Suspect]
     Dosage: 500 MG, 2 IN 1 D, PER ORAL
     Route: 048
     Dates: start: 20040501, end: 20040501
  2. QUETIPAINE [Suspect]
     Dosage: 200 MG,  1 IN 1 D, PER ORAL
     Route: 048
  3. CLONAZEPAM [Concomitant]

REACTIONS (4)
  - ABNORMAL BEHAVIOUR [None]
  - APHASIA [None]
  - DRUG INTERACTION [None]
  - MUSCULOSKELETAL STIFFNESS [None]
